FAERS Safety Report 7877764-8 (Version None)
Quarter: 2011Q4

REPORT INFORMATION
  Report Type: 
  Country: None (occurrence: None)
  Receive Date: 20111031
  Receipt Date: 20111031
  Transmission Date: 20120403
  Serious: Yes (Life-Threatening, Hospitalization, Disabling)
  Sender: FDA-Public Use
  Company Number: None

PATIENT
  Sex: Male
  Weight: 106.5 kg

DRUGS (2)
  1. FLUPHENAZINE [Concomitant]
     Indication: PSYCHOTIC DISORDER
     Dosage: 10MG
     Route: 048
  2. RISPERIDONE [Suspect]
     Indication: PSYCHOTIC DISORDER
     Dosage: 2MG
     Route: 048

REACTIONS (7)
  - MALAISE [None]
  - FATIGUE [None]
  - NEUROLEPTIC MALIGNANT SYNDROME [None]
  - ASTHENIA [None]
  - POLYNEUROPATHY [None]
  - CHILLS [None]
  - MENTAL STATUS CHANGES [None]
